FAERS Safety Report 4316808-7 (Version None)
Quarter: 2004Q1

REPORT INFORMATION
  Report Type: 
  Country: None (occurrence: None)
  Receive Date: 20040308
  Receipt Date: 20040105
  Transmission Date: 20041129
  Serious: No
  Sender: FDA-Public Use
  Company Number: PHEH2004US00500

PATIENT
  Age: 60 Year
  Sex: Female

DRUGS (2)
  1. GLEEVEC [Suspect]
     Indication: LEUKAEMIA
     Dosage: 400 MG, QD, ORAL
     Route: 048
     Dates: start: 20020901, end: 20031201
  2. GLEEVEC [Suspect]
     Indication: LEUKAEMIA
     Dosage: 400 MG, QD, ORAL
     Route: 048
     Dates: start: 20031201

REACTIONS (9)
  - CHOKING [None]
  - DYSPEPSIA [None]
  - DYSPNOEA [None]
  - FACE OEDEMA [None]
  - JOINT STIFFNESS [None]
  - MUSCLE RIGIDITY [None]
  - NAUSEA [None]
  - NEUROPATHY [None]
  - SWELLING FACE [None]
